FAERS Safety Report 9586334 (Version 1)
Quarter: 2013Q4

REPORT INFORMATION
  Report Type: Report from Study
  Country: BR (occurrence: BR)
  Receive Date: 20131003
  Receipt Date: 20131003
  Transmission Date: 20140711
  Serious: Yes (Death, Other)
  Sender: FDA-Public Use
  Company Number: PHHY2013BR109613

PATIENT
  Age: 76 Year
  Sex: Male
  Weight: 51 kg

DRUGS (2)
  1. FORASEQ [Suspect]
     Indication: FIBROSIS
     Dosage: 2 DF, QD
     Dates: start: 201210
  2. FORASEQ [Suspect]
     Indication: OFF LABEL USE

REACTIONS (3)
  - Respiratory failure [Fatal]
  - Pneumonia [Fatal]
  - Thrombosis [Unknown]
